FAERS Safety Report 12350606 (Version 1)
Quarter: 2016Q2

REPORT INFORMATION
  Report Type: Spontaneous
  Country: None (occurrence: None)
  Receive Date: 20160509
  Receipt Date: 20160509
  Transmission Date: 20160815
  Serious: No
  Sender: FDA-Public Use
  Company Number: None

PATIENT
  Sex: Female

DRUGS (2)
  1. TOUJEO [Suspect]
     Active Substance: INSULIN GLARGINE
  2. HUMALOG [Suspect]
     Active Substance: INSULIN LISPRO

REACTIONS (12)
  - Blood glucose decreased [None]
  - Poor quality sleep [None]
  - Urinary incontinence [None]
  - Abdominal discomfort [None]
  - Tremor [None]
  - Stress [None]
  - Weight increased [None]
  - Pain in extremity [None]
  - Bronchitis [None]
  - Kidney infection [None]
  - Glycosylated haemoglobin increased [None]
  - Cystitis [None]
